FAERS Safety Report 24940149 (Version 1)
Quarter: 2025Q1

REPORT INFORMATION
  Report Type: Spontaneous
  Country: DK (occurrence: DK)
  Receive Date: 20250207
  Receipt Date: 20250207
  Transmission Date: 20250409
  Serious: Yes (Death, Life-Threatening, Hospitalization, Other)
  Sender: ABBVIE
  Company Number: None

PATIENT
  Age: 76 Year
  Sex: Female

DRUGS (2)
  1. SKYRIZI [Suspect]
     Active Substance: RISANKIZUMAB-RZAA
     Indication: Crohn^s disease
     Route: 042
     Dates: start: 20241126, end: 202412
  2. PREDNISOLONE [Suspect]
     Active Substance: PREDNISOLONE
     Indication: Colitis ulcerative
     Route: 048
     Dates: start: 20240904, end: 20241210

REACTIONS (5)
  - Duodenal ulcer perforation [Fatal]
  - Abdominal pain [Unknown]
  - Abdominal abscess [Fatal]
  - Acute abdomen [Fatal]
  - Septic shock [Fatal]

NARRATIVE: CASE EVENT DATE: 20240101
